FAERS Safety Report 19139747 (Version 1)
Quarter: 2021Q2

REPORT INFORMATION
  Report Type: Report from Study
  Country: GB (occurrence: GB)
  Receive Date: 20210415
  Receipt Date: 20210415
  Transmission Date: 20210717
  Serious: Yes (Hospitalization)
  Sender: FDA-Public Use
  Company Number: GB-PFIZER INC-2021395479

PATIENT
  Weight: 62.1 kg

DRUGS (30)
  1. ACICLOVIR [Concomitant]
     Active Substance: ACYCLOVIR
     Indication: PROPHYLAXIS
     Dosage: 250 MG, 3X/DAY
     Dates: start: 20210316
  2. DOCUSATE SODIUM. [Concomitant]
     Active Substance: DOCUSATE SODIUM
     Indication: CONSTIPATION
     Dosage: 100 MG, 2X/DAY
     Dates: start: 20210320
  3. PANTOPRAZOLE [Concomitant]
     Active Substance: PANTOPRAZOLE
     Indication: REFLUX GASTRITIS
     Dosage: 40 MG, 1X/DAY
     Dates: start: 20210317
  4. TAMSULOSIN [Concomitant]
     Active Substance: TAMSULOSIN
     Indication: HYDRONEPHROSIS
     Dosage: 400 MG, 1X/DAY
     Dates: start: 20210404
  5. PIPERACILLIN/TAZOBACTAM [Concomitant]
     Active Substance: PIPERACILLIN SODIUM\TAZOBACTAM SODIUM
     Indication: FEBRILE NEUTROPENIA
     Dosage: 4.5 G, 4X/DAY
     Dates: start: 20210317, end: 20210329
  6. MITOXANTRONE HCL [Suspect]
     Active Substance: MITOXANTRONE HYDROCHLORIDE
     Indication: ACUTE MYELOID LEUKAEMIA
     Dosage: 22 MG/M2, 1X/DAY
     Route: 042
     Dates: start: 20210106, end: 20210224
  7. PARACETAMOL [Concomitant]
     Active Substance: ACETAMINOPHEN
     Indication: PAIN
     Dosage: 1 G, AS NEEDED
  8. AMBISOME [Concomitant]
     Active Substance: AMPHOTERICIN B
     Indication: FUNGAL INFECTION
     Dosage: 152 MG, EVERY OTHER DAY
     Dates: start: 20210322
  9. CYTARABINE. [Concomitant]
     Active Substance: CYTARABINE
     Indication: CHEMOTHERAPY
     Dosage: 180 MG, 3X/DAY
     Dates: start: 20210106, end: 20210302
  10. ENOXAPARIN [Concomitant]
     Active Substance: ENOXAPARIN
     Indication: DEEP VEIN THROMBOSIS
     Dosage: 40 MG, 2X/DAY
     Dates: start: 20210222, end: 20210405
  11. OXYCODONE [Concomitant]
     Active Substance: OXYCODONE
     Indication: PAIN
     Dosage: 5 MG, AS NEEDED
     Dates: start: 20210330, end: 20210401
  12. OXYCODONE [Concomitant]
     Active Substance: OXYCODONE
     Indication: HYDRONEPHROSIS
     Dosage: 40 MG
     Dates: start: 20210401
  13. UROKINASE [Concomitant]
     Active Substance: UROKINASE
     Indication: CATHETER MANAGEMENT
     Dosage: UNK, AS NEEDED (5000 UNITS)
     Dates: start: 20210323, end: 20210330
  14. CIPROFLOXACIN. [Concomitant]
     Active Substance: CIPROFLOXACIN
     Indication: FEBRILE NEUTROPENIA
     Dosage: 400 MG, 4X/DAY
     Dates: start: 20210317, end: 20210329
  15. COLECALCIFEROL [Concomitant]
     Active Substance: CHOLECALCIFEROL
     Indication: VITAMIN SUPPLEMENTATION
     Dosage: 800 UNITS, 1X/DAY
     Dates: start: 20210210
  16. CHLORHEXIDINE 1% DENTAL GEL [Concomitant]
     Indication: MUCOSAL INFLAMMATION
     Dosage: UNK, 2X/DAY (DOSE: 1, UNIT: OTHER)
     Dates: start: 20210329
  17. AMILORIDE [Concomitant]
     Active Substance: AMILORIDE
     Indication: HYPOKALAEMIA
     Dosage: 5 MG, 2X/DAY
     Dates: start: 20210227, end: 20210402
  18. CHLORHEXIDINE 0.2% MOUTHWASH [Concomitant]
     Indication: MUCOSAL INFLAMMATION
     Dosage: 10 ML, 2X/DAY
     Dates: start: 20210318
  19. COTRIMOXAZOLE [Concomitant]
     Active Substance: SULFAMETHOXAZOLE\TRIMETHOPRIM
     Indication: PNEUMOCYSTIS JIROVECII PNEUMONIA
     Dosage: 480 MG (FREQ: OTHER)
     Dates: start: 20210104
  20. G?CSF [Concomitant]
     Active Substance: GRANULOCYTE COLONY-STIMULATING FACTOR NOS
     Indication: NEUTROPENIA
     Dosage: 300 UG, 1X/DAY
     Dates: start: 20210406, end: 20210406
  21. LEVOMEPROMAZINE [Concomitant]
     Active Substance: LEVOMEPROMAZINE
     Indication: HYDRONEPHROSIS
     Dosage: 12.5 MG
     Dates: start: 20210401
  22. MAGNESIUM SULFATE. [Concomitant]
     Active Substance: MAGNESIUM SULFATE
     Indication: HYPOMAGNESAEMIA
     Dosage: 10 MMOL, AS NEEDED
     Dates: start: 20210227, end: 20210405
  23. GEMTUZUMAB OZOGAMICIN [Suspect]
     Active Substance: GEMTUZUMAB OZOGAMICIN
     Indication: ACUTE MYELOID LEUKAEMIA
     Dosage: 5 MG
     Route: 042
     Dates: start: 20210111, end: 20210111
  24. LEVOMEPROMAZINE [Concomitant]
     Active Substance: LEVOMEPROMAZINE
     Indication: NAUSEA
     Dosage: 3.5 MG, AS NEEDED
     Dates: start: 20210224, end: 20210331
  25. METOCLOPRAMIDE. [Concomitant]
     Active Substance: METOCLOPRAMIDE
     Indication: NAUSEA
     Dosage: 10 MG, AS NEEDED
     Dates: start: 20210222, end: 20210401
  26. POSACONAZOLE [Concomitant]
     Active Substance: POSACONAZOLE
     Indication: ANTIFUNGAL PROPHYLAXIS
     Dosage: 300 MG, 1X/DAY
     Dates: start: 20210401
  27. POTASSIUM CHLORIDE. [Concomitant]
     Active Substance: POTASSIUM CHLORIDE
     Indication: HYPOKALAEMIA
     Dosage: 40 MMOL, AS NEEDED
     Dates: start: 20210224, end: 20210404
  28. AMBISOME [Concomitant]
     Active Substance: AMPHOTERICIN B
     Dosage: 200 MG, EVERY OTHER DAY
     Dates: end: 20210331
  29. MACROGOL 3350 [Concomitant]
     Active Substance: POLYETHYLENE GLYCOL 3350
     Indication: CONSTIPATION
     Dosage: UNK, AS NEEDED (1 SACHET)
     Dates: start: 20210314, end: 20210331
  30. ONDANSETRON [Concomitant]
     Active Substance: ONDANSETRON
     Indication: HYDRONEPHROSIS
     Dosage: 24 MG
     Dates: start: 20210401

REACTIONS (2)
  - Urinary tract obstruction [Not Recovered/Not Resolved]
  - Pain [Not Recovered/Not Resolved]

NARRATIVE: CASE EVENT DATE: 20210330
